FAERS Safety Report 5792671-2 (Version None)
Quarter: 2008Q2

REPORT INFORMATION
  Report Type: 
  Country: None (occurrence: None)
  Receive Date: 20080624
  Receipt Date: 20080616
  Transmission Date: 20081010
  Serious: Yes (Hospitalization, Other)
  Sender: FDA-Public Use
  Company Number: 2008US000934

PATIENT
  Age: 13 Year
  Sex: Male
  Weight: 46.9 kg

DRUGS (27)
  1. AMBISOME [Suspect]
     Indication: CRYPTOCOCCOSIS
     Dosage: 117.2 MG, UID/QD, IV NOS
     Route: 042
     Dates: start: 20080220, end: 20080317
  2. BAKTAR (SULFAMETHOXAZOLE, TRIMTHOPRIM) [Concomitant]
  3. FLOMOX (CEFCAPENE PIVOXIL HYDROCHLORIDE) [Concomitant]
  4. FOIPAN (CAMOSTAT MESILATE) [Concomitant]
  5. DAIKENTYUTO (HERBAL EXTRACT NOS) [Concomitant]
  6. MUCOSAL [Concomitant]
  7. POLARAMINE [Concomitant]
  8. SOLDEM 3A (SODIUM LACTATE, POTASSIUM CHLORIDE, CARBOHYDRATES NOS, SODI [Concomitant]
  9. GLUCOSE (GLUCOSE) [Concomitant]
  10. CLARITHROMYCIN [Concomitant]
  11. CARPRONIUM CHLORIDE (CARPRONIUM CHLORIDE) [Concomitant]
  12. POTASSIUM CHLORIDE [Concomitant]
  13. CARBNENIN (BETAMIPRON, PANIPENEM) [Concomitant]
  14. ISOTONIC SOLUTIONS [Concomitant]
  15. MUCODYNE (CARBOCISTEINE) [Concomitant]
  16. SEISHOKU (SODIUM CHLORIDE) [Concomitant]
  17. ITRACONAZOLE [Concomitant]
  18. ACUATIM (NADIFLOXACIN) [Concomitant]
  19. LEUKERIN (MERCAPTOPURINE) [Concomitant]
  20. PREDNISOLONE [Concomitant]
  21. GLYCYRON (AMINOACETIC ACID, GLYCYRRHIZIC ACID, DL-METHIONINE) [Concomitant]
  22. GASTER [Concomitant]
  23. POTASSIUM (POTASSIUM CHLORIDE) [Concomitant]
  24. ERYTHROCIN STEARATE [Concomitant]
  25. KYTRIL [Concomitant]
  26. ONCOVIN [Concomitant]
  27. THERARUBICIN (PIRARUBICIN) [Concomitant]

REACTIONS (6)
  - ALOPECIA [None]
  - BLOOD CREATINE PHOSPHOKINASE INCREASED [None]
  - HYPOKALAEMIA [None]
  - MUSCULAR WEAKNESS [None]
  - MYELOCYTE PERCENTAGE INCREASED [None]
  - SINUSITIS [None]
